FAERS Safety Report 14804613 (Version 1)
Quarter: 2018Q2

REPORT INFORMATION
  Report Type: Spontaneous
  Country: US (occurrence: US)
  Receive Date: 20180425
  Receipt Date: 20180425
  Transmission Date: 20180711
  Serious: No
  Sender: FDA-Public Use
  Company Number: US-BAYER-2018-077642

PATIENT
  Sex: Female

DRUGS (3)
  1. MIRALAX [Suspect]
     Active Substance: POLYETHYLENE GLYCOL 3350
     Indication: VOLVULUS
     Dosage: 1/2 TEASPOON, QD
     Route: 048
     Dates: start: 201801
  2. MIRALAX [Suspect]
     Active Substance: POLYETHYLENE GLYCOL 3350
     Indication: VOLVULUS
     Dosage: 1/2 TEASPOON, QD
     Route: 048
  3. MIRALAX [Suspect]
     Active Substance: POLYETHYLENE GLYCOL 3350
     Indication: VOLVULUS
     Dosage: 1/2 TEASPOON, QD
     Route: 048

REACTIONS (6)
  - Product use in unapproved indication [Unknown]
  - Drug administration error [Unknown]
  - Muscle spasms [Unknown]
  - Product solubility abnormal [Unknown]
  - Off label use [Unknown]
  - Dysgeusia [Unknown]

NARRATIVE: CASE EVENT DATE: 2018
